FAERS Safety Report 20074194 (Version 2)
Quarter: 2022Q1

REPORT INFORMATION
  Report Type: Report from Study
  Country: US (occurrence: US)
  Receive Date: 20211116
  Receipt Date: 20220119
  Transmission Date: 20220423
  Serious: Yes (Hospitalization)
  Sender: FDA-Public Use
  Company Number: US-BIOGEN-2021BI01040126

PATIENT
  Age: 55 Year
  Sex: Female

DRUGS (2)
  1. TYSABRI [Suspect]
     Active Substance: NATALIZUMAB
     Indication: Multiple sclerosis
     Route: 065
     Dates: start: 20100512, end: 20181012
  2. TYSABRI [Suspect]
     Active Substance: NATALIZUMAB
     Route: 042
     Dates: start: 20191216

REACTIONS (11)
  - Bone cyst [Recovered/Resolved]
  - Cerebrospinal fluid leakage [Recovered/Resolved]
  - Gastric cyst [Not Recovered/Not Resolved]
  - Cyst [Not Recovered/Not Resolved]
  - Spondylitis [Not Recovered/Not Resolved]
  - Intervertebral disc degeneration [Unknown]
  - Radiculopathy [Recovered/Resolved]
  - Burning sensation [Not Recovered/Not Resolved]
  - Neurological procedural complication [Not Recovered/Not Resolved]
  - Breast cyst [Unknown]
  - Headache [Unknown]

NARRATIVE: CASE EVENT DATE: 20210811
